FAERS Safety Report 9259346 (Version 1)
Quarter: 2013Q2

REPORT INFORMATION
  Report Type: Report from Study
  Country: GB (occurrence: GB)
  Receive Date: 20130427
  Receipt Date: 20130427
  Transmission Date: 20140414
  Serious: Yes (Hospitalization)
  Sender: FDA-Public Use
  Company Number: GB-ROCHE-1219054

PATIENT
  Sex: Female
  Weight: 59 kg

DRUGS (2)
  1. RITUXIMAB [Suspect]
     Indication: RHEUMATOID ARTHRITIS
     Dosage: LAST DOSE PRIOR TO SAE ON 12/FEB/2013
     Route: 065
     Dates: start: 20100710
  2. METHOTREXATE [Concomitant]

REACTIONS (1)
  - Gastric ulcer [Unknown]
